FAERS Safety Report 8521793-8 (Version None)
Quarter: 2012Q3

REPORT INFORMATION
  Report Type: 
  Country: None (occurrence: None)
  Receive Date: 20120719
  Receipt Date: 20120407
  Transmission Date: 20120928
  Serious: Yes (Other)
  Sender: FDA-Public Use
  Company Number: US-BRISTOL-MYERS SQUIBB COMPANY-16423345

PATIENT
  Age: 85 Year
  Sex: Male

DRUGS (1)
  1. YERVOY [Suspect]
     Indication: MALIGNANT MELANOMA
     Dosage: 5MG/ML VIAL 200MG
     Route: 042
     Dates: start: 20110921, end: 20111123

REACTIONS (2)
  - NEOPLASM MALIGNANT [None]
  - NEUROPATHY PERIPHERAL [None]
